FAERS Safety Report 10522650 (Version 1)
Quarter: 2014Q4

REPORT INFORMATION
  Report Type: Spontaneous
  Country: US (occurrence: None)
  Receive Date: 20141014
  Receipt Date: 20141014
  Transmission Date: 20150528
  Serious: Yes (Life-Threatening, Hospitalization)
  Sender: FDA-Public Use
  Company Number: DK-SEPTODONT-201402251

PATIENT
  Age: 54 Year
  Sex: Male

DRUGS (1)
  1. ARTICAINE HYDROCHLORIDE; EPINEPHRINE TARTRATE [Suspect]
     Active Substance: ARTICAINE HYDROCHLORIDE\EPINEPHRINE BITARTRATE
     Indication: LOCAL ANAESTHESIA
     Dosage: TOTAL DENTAL
     Dates: start: 20010317, end: 20010317

REACTIONS (19)
  - Choking [None]
  - Cardiomyopathy [None]
  - Prostate cancer [None]
  - Dyspnoea [None]
  - Cardiomegaly [None]
  - Pulmonary function test decreased [None]
  - Myocardial ischaemia [None]
  - Congestive cardiomyopathy [None]
  - Dysphagia [None]
  - Myocarditis [None]
  - Pharyngeal oedema [None]
  - Syncope [None]
  - Swelling face [None]
  - Impaired work ability [None]
  - Angioedema [None]
  - Hypersensitivity [None]
  - Adenocarcinoma [None]
  - Carpal tunnel syndrome [None]
  - Cardiac failure [None]

NARRATIVE: CASE EVENT DATE: 20010317
